FAERS Safety Report 23558753 (Version 1)
Quarter: 2024Q1

REPORT INFORMATION
  Report Type: Spontaneous
  Country: CN (occurrence: CN)
  Receive Date: 20240223
  Receipt Date: 20240223
  Transmission Date: 20240410
  Serious: Yes (Death, Hospitalization, Other)
  Sender: FDA-Public Use
  Company Number: CN-INSUD PHARMA-2402CN01325

PATIENT

DRUGS (3)
  1. BETAMETHASONE [Suspect]
     Active Substance: BETAMETHASONE\BETAMETHASONE DIPROPIONATE
     Indication: Gouty arthritis
     Dosage: PUNCTURE INJECTION INTO SWOLLEN AND PAINFUL JOINTS
     Route: 014
  2. PREDNISONE [Suspect]
     Active Substance: PREDNISONE
     Indication: Gouty arthritis
     Dosage: 5 MG TWICE A DAY, LONG-TERM USE
     Route: 065
  3. COLCHICINE [Concomitant]
     Active Substance: COLCHICINE
     Indication: Gouty arthritis
     Dosage: 0.5 MG ONCE A DAY, TAKING IRREGULARLY

REACTIONS (12)
  - Disseminated mucormycosis [Fatal]
  - Acute respiratory failure [Unknown]
  - Renal impairment [Unknown]
  - Productive cough [Unknown]
  - Sneezing [Unknown]
  - Pyrexia [Unknown]
  - Tachycardia [Unknown]
  - Leukocytosis [Unknown]
  - Anaemia [Unknown]
  - Thrombocytopenia [Unknown]
  - Enterococcal infection [Unknown]
  - Enterobacter pneumonia [Unknown]
